FAERS Safety Report 4749784-3 (Version None)
Quarter: 2005Q3

REPORT INFORMATION
  Report Type: 
  Country: None (occurrence: None)
  Receive Date: 20050819
  Receipt Date: 20050819
  Transmission Date: 20060218
  Serious: Yes (Other)
  Sender: FDA-Public Use
  Company Number: None

PATIENT
  Age: 66 Year
  Sex: Female
  Weight: 57.1532 kg

DRUGS (4)
  1. ZOCOR [Suspect]
     Indication: HYPERLIPIDAEMIA
     Dosage: DAILY
  2. ASPIRIN [Concomitant]
  3. DARVOCET-N 100 [Concomitant]
  4. PROZAC [Concomitant]

REACTIONS (2)
  - ABDOMINAL PAIN [None]
  - ARTHRALGIA [None]
